FAERS Safety Report 8136520-6 (Version None)
Quarter: 2012Q1

REPORT INFORMATION
  Report Type: 
  Country: None (occurrence: None)
  Receive Date: 20120214
  Receipt Date: 20120131
  Transmission Date: 20120608
  Serious: Yes (Hospitalization, Other)
  Sender: FDA-Public Use
  Company Number: PHHY2012BR000728

PATIENT
  Sex: Female

DRUGS (7)
  1. CLOZAPINE [Suspect]
     Dosage: 500 MG (5 TABLETS)
     Route: 048
  2. CLOZAPINE [Suspect]
     Dosage: 450 MG, A DAY (4 TABLETS AND HALF)
     Route: 048
  3. CLOZAPINE [Suspect]
     Dosage: 500 MG, UNK
  4. CLOZAPINE [Suspect]
     Dosage: 100 MG, UNK
  5. TOPIRAMATE [Concomitant]
     Indication: CONVULSION
     Dosage: 150 MG, DAILY
     Route: 048
  6. AKINETON [Concomitant]
     Indication: CONVULSION
     Dosage: 2 DF, DAILY
     Route: 048
  7. CLOZAPINE [Suspect]
     Indication: SCHIZOPHRENIA
     Dosage: 100 MG, 1 TABLET A DAY
     Route: 048

REACTIONS (5)
  - ABNORMAL BEHAVIOUR [None]
  - AGITATION [None]
  - TREMOR [None]
  - MALAISE [None]
  - HALLUCINATION [None]
